FAERS Safety Report 4768822-5 (Version None)
Quarter: 2005Q3

REPORT INFORMATION
  Report Type: 
  Country: None (occurrence: None)
  Receive Date: 20050914
  Receipt Date: 20050912
  Transmission Date: 20060218
  Serious: Yes (Other)
  Sender: FDA-Public Use
  Company Number: GB-MERCK-0509GBR00068

PATIENT
  Age: 58 Year
  Sex: Female
  Weight: 69 kg

DRUGS (7)
  1. FOSAMAX [Suspect]
     Indication: PROPHYLAXIS
     Route: 048
  2. RISEDRONATE SODIUM [Suspect]
     Indication: PROPHYLAXIS
     Route: 048
  3. PREDNISOLONE [Concomitant]
     Indication: BACK PAIN
     Route: 048
     Dates: start: 19850101
  4. MEPERIDINE HYDROCHLORIDE [Concomitant]
     Indication: PAIN
     Route: 048
     Dates: start: 19980101
  5. PENTAZOCINE [Concomitant]
     Indication: PAIN
     Route: 048
     Dates: start: 20010101
  6. CALCIUM CARBONATE AND CHOLECALCIFEROL [Concomitant]
     Indication: PROPHYLAXIS
     Route: 048
     Dates: start: 20010101
  7. AMILORIDE HYDROCHLORIDE AND FUROSEMIDE [Concomitant]
     Indication: OEDEMA PERIPHERAL
     Route: 048
     Dates: start: 20010101

REACTIONS (1)
  - WHEEZING [None]
